FAERS Safety Report 12585502 (Version 1)
Quarter: 2016Q3

REPORT INFORMATION
  Report Type: Report from Study
  Country: US (occurrence: US)
  Receive Date: 20160725
  Receipt Date: 20160725
  Transmission Date: 20161109
  Serious: Yes (Other)
  Sender: FDA-Public Use
  Company Number: US-AMGEN-USASL2016094224

PATIENT
  Age: 67 Year
  Sex: Female

DRUGS (1)
  1. ENBREL [Suspect]
     Active Substance: ETANERCEPT
     Indication: PSORIATIC ARTHROPATHY
     Dosage: UNK UNK, QWK
     Route: 065
     Dates: start: 2015

REACTIONS (8)
  - Joint warmth [Not Recovered/Not Resolved]
  - Thrombosis [Recovered/Resolved]
  - Pain [Unknown]
  - Neck pain [Not Recovered/Not Resolved]
  - Joint destruction [Not Recovered/Not Resolved]
  - Spinal pain [Not Recovered/Not Resolved]
  - Fall [Unknown]
  - Swelling [Not Recovered/Not Resolved]

NARRATIVE: CASE EVENT DATE: 2016
